FAERS Safety Report 19052685 (Version 1)
Quarter: 2021Q1

REPORT INFORMATION
  Report Type: Spontaneous
  Country: US (occurrence: US)
  Receive Date: 20210324
  Receipt Date: 20210324
  Transmission Date: 20210420
  Serious: Yes (Other)
  Sender: FDA-Public Use
  Company Number: US-PFIZER INC-2021293320

PATIENT
  Age: 58 Year
  Sex: Female

DRUGS (1)
  1. XELJANZ [Suspect]
     Active Substance: TOFACITINIB CITRATE
     Indication: RHEUMATOID ARTHRITIS
     Dosage: 5 MG, 2X/DAY, (EVERY 12 HOURS)
     Route: 048
     Dates: start: 202008

REACTIONS (4)
  - Diarrhoea [Unknown]
  - Bronchitis [Unknown]
  - Coeliac disease [Unknown]
  - Abdominal discomfort [Unknown]
